FAERS Safety Report 19922444 (Version 1)
Quarter: 2021Q4

REPORT INFORMATION
  Report Type: Spontaneous
  Country: US (occurrence: US)
  Receive Date: 20211005
  Receipt Date: 20211005
  Transmission Date: 20220303
  Serious: No
  Sender: FDA-Public Use
  Company Number: US-SA-SAC20211004000299

PATIENT
  Sex: Female

DRUGS (2)
  1. ARAVA [Suspect]
     Active Substance: LEFLUNOMIDE
     Indication: Product used for unknown indication
  2. RITUXAN [Concomitant]
     Active Substance: RITUXIMAB

REACTIONS (5)
  - Neuralgia [Unknown]
  - Alopecia [Unknown]
  - Arthralgia [Unknown]
  - Weight decreased [Unknown]
  - Anaemia [Unknown]
